FAERS Safety Report 4402362-8 (Version None)
Quarter: 2004Q3

REPORT INFORMATION
  Report Type: 
  Country: None (occurrence: None)
  Receive Date: 20040720
  Receipt Date: 20040713
  Transmission Date: 20050211
  Serious: Yes (Other)
  Sender: FDA-Public Use
  Company Number: PHNU2004DE02513

PATIENT

DRUGS (1)
  1. DICLOFENAC [Suspect]
     Route: 030

REACTIONS (1)
  - SHOCK [None]
